FAERS Safety Report 5232682-9 (Version None)
Quarter: 2007Q1

REPORT INFORMATION
  Report Type: 
  Country: None (occurrence: None)
  Receive Date: 20070207
  Receipt Date: 20070201
  Transmission Date: 20070707
  Serious: Yes (Hospitalization)
  Sender: FDA-Public Use
  Company Number: US-MERCK-0701USA01372

PATIENT
  Sex: Female

DRUGS (5)
  1. EMEND [Suspect]
     Indication: PROCEDURAL NAUSEA
     Route: 048
     Dates: start: 20070109, end: 20070109
  2. EMEND [Suspect]
     Indication: PROCEDURAL VOMITING
     Route: 048
     Dates: start: 20070109, end: 20070109
  3. MIDAZOLAM [Concomitant]
     Route: 065
  4. FENTANYL [Concomitant]
     Route: 065
  5. BUPIVACAINE HYDROCHLORIDE [Suspect]
     Route: 065

REACTIONS (2)
  - CONVULSION [None]
  - NO ADVERSE EFFECT [None]
